FAERS Safety Report 7018705 (Version 2)
Quarter: 2013Q1

REPORT INFORMATION
  Report Type: Report from Study
  Country: US (occurrence: US)
  Receive Date: 20090612
  Receipt Date: 20130129
  Transmission Date: 20140127
  Serious: No
  Sender: FDA-Public Use
  Company Number: US-ABBOTT-09P-163-0563327-00

PATIENT
  Sex: Female

DRUGS (3)
  1. HUMIRA 40 MG/ 0.8 ML PRE-FILLED SYRINGE [Suspect]
     Indication: JUVENILE IDIOPATHIC ARTHRITIS
     Route: 058
     Dates: start: 200812, end: 200904
  2. HUMIRA 40 MG/ 0.8 ML PRE-FILLED SYRINGE [Suspect]
     Indication: UVEITIS
     Route: 058
     Dates: start: 2010
  3. HUMIRA 40 MG/ 0.8 ML PRE-FILLED SYRINGE [Suspect]
     Indication: IRITIS

REACTIONS (6)
  - Uveitis [Unknown]
  - Injection site swelling [Not Recovered/Not Resolved]
  - Rash generalised [Recovered/Resolved]
  - Off label use [Unknown]
  - Iritis [Unknown]
  - Injection site pain [Not Recovered/Not Resolved]
